FAERS Safety Report 17603923 (Version 1)
Quarter: 2020Q1

REPORT INFORMATION
  Report Type: Spontaneous
  Country: US (occurrence: US)
  Receive Date: 20200327
  Receipt Date: 20200327
  Transmission Date: 20200409
  Serious: Yes (Hospitalization)
  Sender: FDA-Public Use
  Company Number: None

PATIENT
  Age: 35 Year
  Sex: Female

DRUGS (7)
  1. NOVOLOG [Concomitant]
     Active Substance: INSULIN ASPART
  2. GABAPENTIN. [Concomitant]
     Active Substance: GABAPENTIN
  3. HUMIRA [Suspect]
     Active Substance: ADALIMUMAB
     Dosage: ?          OTHER FREQUENCY:EVERY 2 WEEKS;?
     Route: 058
     Dates: start: 20200304
  4. DICLOFENAC [Concomitant]
     Active Substance: DICLOFENAC
  5. LANTUS [Concomitant]
     Active Substance: INSULIN GLARGINE
  6. MELOXICAM. [Concomitant]
     Active Substance: MELOXICAM
  7. PREDNISONE. [Concomitant]
     Active Substance: PREDNISONE

REACTIONS (1)
  - Condition aggravated [None]
